FAERS Safety Report 23203207 (Version 1)
Quarter: 2023Q4

REPORT INFORMATION
  Report Type: Spontaneous
  Country: US (occurrence: US)
  Receive Date: 20231120
  Receipt Date: 20231120
  Transmission Date: 20240110
  Serious: No
  Sender: FDA-Public Use
  Company Number: US-BAUSCHBL-2023BNL011352

PATIENT
  Sex: Male

DRUGS (2)
  1. ALAWAY [Suspect]
     Active Substance: KETOTIFEN FUMARATE
     Indication: Product used for unknown indication
     Dosage: 3 TO 4 DROPS I TO 2 TIMES PER DAY EACH DAY IN BOTH EYES
     Route: 047
     Dates: end: 20231026
  2. VISINE (MACROGOL;TETRYZOLINE HYDROCHLORIDE) [Concomitant]
     Indication: Product used for unknown indication
     Route: 065

REACTIONS (2)
  - Eye irritation [Not Recovered/Not Resolved]
  - Photopsia [Not Recovered/Not Resolved]

NARRATIVE: CASE EVENT DATE: 20230901
